FAERS Safety Report 9334187 (Version 1)
Quarter: 2013Q2

REPORT INFORMATION
  Report Type: Report from Study
  Country: US (occurrence: US)
  Receive Date: 20130606
  Receipt Date: 20130606
  Transmission Date: 20140414
  Serious: Yes (Death, Other)
  Sender: FDA-Public Use
  Company Number: US-VERTEX PHARMACEUTICALS INC-2013-006531

PATIENT
  Sex: 0

DRUGS (3)
  1. VX-950 (TELAPREVIR) [Suspect]
     Indication: HEPATITIS C
  2. PEGINTERFERON [Suspect]
     Indication: HEPATITIS C
  3. RIBAVIRIN [Suspect]
     Indication: HEPATITIS C

REACTIONS (27)
  - Sepsis [Fatal]
  - Multi-organ failure [Fatal]
  - Liver transplant rejection [Unknown]
  - Angina unstable [Unknown]
  - Posterior reversible encephalopathy syndrome [Unknown]
  - Hepatic encephalopathy [Unknown]
  - Renal impairment [Unknown]
  - Hepatitis cholestatic [Unknown]
  - Hepatic cirrhosis [Unknown]
  - Thrombocytopenia [Unknown]
  - Anaemia [Unknown]
  - Off label use [Unknown]
  - Leukopenia [Unknown]
  - Urinary tract infection [Unknown]
  - Sinusitis [Unknown]
  - Cellulitis [Unknown]
  - Ascites [Unknown]
  - Gingival hyperplasia [Unknown]
  - Herpes zoster [Unknown]
  - Trigeminal neuralgia [Unknown]
  - Neuropsychiatric syndrome [Unknown]
  - Mental disorder [Unknown]
  - Infection [Unknown]
  - Anorectal disorder [Recovered/Resolved]
  - Drug ineffective [Recovered/Resolved]
  - Rash [Recovered/Resolved]
  - Dysgeusia [Unknown]
